FAERS Safety Report 24163557 (Version 3)
Quarter: 2025Q4

REPORT INFORMATION
  Report Type: Report from Study
  Country: JP (occurrence: JP)
  Receive Date: 20240801
  Receipt Date: 20251118
  Transmission Date: 20260118
  Serious: Yes (Other)
  Sender: GENMAB
  Company Number: JP-GENMAB-2024-02691

PATIENT
  Age: 73 Year
  Sex: Female

DRUGS (13)
  1. EPKINLY [Suspect]
     Active Substance: EPCORITAMAB-BYSP
     Indication: Diffuse large B-cell lymphoma refractory
     Dosage: 0.16 MILLIGRAM, SINGLE
     Route: 058
     Dates: start: 20240701, end: 20240701
  2. EPKINLY [Suspect]
     Active Substance: EPCORITAMAB-BYSP
     Dosage: 0.8 MILLIGRAM, SINGLE
     Route: 058
     Dates: start: 20240708, end: 20240708
  3. EPKINLY [Suspect]
     Active Substance: EPCORITAMAB-BYSP
     Dosage: 48 MILLIGRAM, WEEKLY, UNTIL THE FIRST ADMINISTRATION IN CYCLE 2
     Route: 058
     Dates: start: 20240715, end: 20240729
  4. DECADRON [Suspect]
     Active Substance: DEXAMETHASONE
     Indication: Prophylaxis
     Dosage: 16 MILLIGRAM, ON DAY 1, DAY 2, DAY 3, AND DAY 4 OF ADMINISTRATION OF EPKINLY, AT THE FIRST ADMINISTR
     Dates: start: 20240701, end: 20240704
  5. DECADRON [Suspect]
     Active Substance: DEXAMETHASONE
     Dosage: 9.9 MILLIGRAM/DAY, INJECTION, ON DAY 1 OF ADMINISTRATION OF EPKINLY, FROM THE SECOND TO THE FOURTH A
     Dates: start: 20240708, end: 20240722
  6. DIPHENHYDRAMINE HYDROCHLORIDE [Concomitant]
     Active Substance: DIPHENHYDRAMINE HYDROCHLORIDE
     Indication: Prophylaxis
     Dosage: 50 MILLIGRAM, ON DAY 1 OF ADMINISTRATION OF EPKINLY, FROM THE FIRST TO THE FOURTH ADMINISTRATION IN
     Dates: start: 20240701, end: 20240722
  7. CALONAL [Concomitant]
     Active Substance: ACETAMINOPHEN
     Indication: Prophylaxis
     Dosage: 1000 MILLIGRAM, ON DAY 1 OF ADMINISTRATION OF EPKINLY, FROM THE FIRST TO THE FOURTH ADMINISTRATION I
     Dates: start: 20240701, end: 20240722
  8. CALCIUM CHLORIDE\MAGNESIUM CHLORIDE\POTASSIUM CHLORIDE\SODIUM ACETATE\ [Concomitant]
     Active Substance: CALCIUM CHLORIDE\MAGNESIUM CHLORIDE\POTASSIUM CHLORIDE\SODIUM ACETATE\SODIUM CHLORIDE
     Indication: Prophylaxis
     Dosage: 500 MILLILITER
     Dates: start: 20240701, end: 20240701
  9. SULFAMETHOXAZOLE\TRIMETHOPRIM [Concomitant]
     Active Substance: SULFAMETHOXAZOLE\TRIMETHOPRIM
     Indication: Prophylaxis
     Dosage: UNK
  10. ACYCLOVIR [Concomitant]
     Active Substance: ACYCLOVIR
     Indication: Antiviral prophylaxis
     Dosage: UNK
  11. CEFTRIAXONE SODIUM [Concomitant]
     Active Substance: CEFTRIAXONE SODIUM
     Dosage: UNK
  12. HIZENTRA [Concomitant]
     Active Substance: HUMAN IMMUNOGLOBULIN G
     Dosage: UNK
  13. FILGRASTIM [Concomitant]
     Active Substance: FILGRASTIM
     Dosage: UNK

REACTIONS (4)
  - Diffuse large B-cell lymphoma refractory [Unknown]
  - Thrombocytopenia [Not Recovered/Not Resolved]
  - Cytokine release syndrome [Recovered/Resolved]
  - Inappropriate schedule of product administration [Unknown]

NARRATIVE: CASE EVENT DATE: 20240101
